FAERS Safety Report 22642954 (Version 1)
Quarter: 2023Q2

REPORT INFORMATION
  Report Type: Spontaneous
  Country: US (occurrence: US)
  Receive Date: 20230627
  Receipt Date: 20230627
  Transmission Date: 20230721
  Serious: No
  Sender: FDA-Public Use
  Company Number: US-ALCON LABORATORIES-ALC2022US005610

PATIENT
  Age: 40 Year
  Sex: Female

DRUGS (2)
  1. PATADAY TWICE A DAY RELIEF [Suspect]
     Active Substance: OLOPATADINE HYDROCHLORIDE
     Indication: Eye pruritus
     Dosage: 1 DRP PER EYE EVERY 5-6 HOURS FOR 2-3 WEEKS
     Route: 047
     Dates: start: 202209, end: 20220920
  2. PATADAY TWICE A DAY RELIEF [Suspect]
     Active Substance: OLOPATADINE HYDROCHLORIDE
     Indication: Dry eye

REACTIONS (3)
  - Drug ineffective [Unknown]
  - Product delivery mechanism issue [Unknown]
  - Product dispensing issue [Unknown]
